FAERS Safety Report 19363335 (Version 4)
Quarter: 2021Q3

REPORT INFORMATION
  Report Type: Report from Study
  Country: US (occurrence: US)
  Receive Date: 20210602
  Receipt Date: 20210906
  Transmission Date: 20211014
  Serious: Yes (Other)
  Sender: FDA-Public Use
  Company Number: NVSC2021US117153

PATIENT
  Sex: Female

DRUGS (1)
  1. KISQALI [Suspect]
     Active Substance: RIBOCICLIB
     Indication: PRODUCT USED FOR UNKNOWN INDICATION
     Dosage: UNK
     Route: 048

REACTIONS (10)
  - Pneumothorax [Unknown]
  - Nausea [Unknown]
  - Decreased appetite [Unknown]
  - Pleural effusion [Unknown]
  - Cough [Unknown]
  - Wound [Unknown]
  - Diarrhoea [Unknown]
  - Dyspnoea [Unknown]
  - Product supply issue [Unknown]
  - Fatigue [Unknown]
